FAERS Safety Report 4872513-X (Version None)
Quarter: 2005Q4

REPORT INFORMATION
  Report Type: 
  Country: None (occurrence: None)
  Receive Date: 20051230
  Receipt Date: 20051230
  Transmission Date: 20060501
  Serious: No
  Sender: FDA-Public Use
  Company Number: None

PATIENT
  Sex: Male
  Weight: 72.5755 kg

DRUGS (1)
  1. LEVAQUIN [Suspect]
     Indication: SINUSITIS
     Dosage: 500MG    1/DAY    PO
     Route: 048
     Dates: start: 20051213, end: 20051220

REACTIONS (2)
  - TENDON DISORDER [None]
  - TENDONITIS [None]
